FAERS Safety Report 15213435 (Version 1)
Quarter: 2018Q3

REPORT INFORMATION
  Report Type: Spontaneous
  Country: FR (occurrence: FR)
  Receive Date: 20180730
  Receipt Date: 20180730
  Transmission Date: 20181010
  Serious: Yes (Other)
  Sender: FDA-Public Use
  Company Number: FR-ROCHE-2161823

PATIENT
  Age: 1 Year
  Sex: Male
  Weight: 8 kg

DRUGS (1)
  1. CYMEVAN [Suspect]
     Active Substance: GANCICLOVIR
     Indication: INTERSTITIAL LUNG DISEASE
     Route: 042
     Dates: start: 20180619

REACTIONS (4)
  - Overdose [Unknown]
  - Drug prescribing error [Unknown]
  - Blood creatine increased [Recovered/Resolved]
  - Blood urea increased [Recovered/Resolved]

NARRATIVE: CASE EVENT DATE: 20180621
